FAERS Safety Report 25245720 (Version 1)
Quarter: 2025Q2

REPORT INFORMATION
  Report Type: Spontaneous
  Country: US (occurrence: None)
  Receive Date: 20250427
  Receipt Date: 20250427
  Transmission Date: 20250717
  Serious: Yes (Other)
  Sender: FDA-CTU
  Company Number: None

PATIENT
  Age: 33 Year
  Sex: Female
  Weight: 56.25 kg

DRUGS (6)
  1. QELBREE [Suspect]
     Active Substance: VILOXAZINE HYDROCHLORIDE
     Indication: Attention deficit hyperactivity disorder
     Route: 048
     Dates: start: 20250327, end: 20250424
  2. ATOMOXETINE [Suspect]
     Active Substance: ATOMOXETINE
  3. VENLAFAXINE [Concomitant]
     Active Substance: VENLAFAXINE HYDROCHLORIDE
  4. Women^s 4in 1 protection (Culturelle probiotics) [Concomitant]
  5. VITAMIN D3 [Concomitant]
     Active Substance: CHOLECALCIFEROL
  6. DOCUSATE SODIUM [Concomitant]
     Active Substance: DOCUSATE SODIUM

REACTIONS (12)
  - Fatigue [None]
  - Somnolence [None]
  - Somnolence [None]
  - Arthralgia [None]
  - Feeling cold [None]
  - Dry mouth [None]
  - Libido decreased [None]
  - Constipation [None]
  - Orgasm abnormal [None]
  - Sleep disorder [None]
  - Social anxiety disorder [None]
  - Nightmare [None]

NARRATIVE: CASE EVENT DATE: 20250424
